FAERS Safety Report 20212842 (Version 2)
Quarter: 2022Q1

REPORT INFORMATION
  Report Type: Spontaneous
  Country: JP (occurrence: JP)
  Receive Date: 20211221
  Receipt Date: 20220308
  Transmission Date: 20220423
  Serious: Yes (Other)
  Sender: FDA-Public Use
  Company Number: JP-PFIZER INC-202101772023

PATIENT
  Sex: Female

DRUGS (1)
  1. ENBREL [Suspect]
     Active Substance: ETANERCEPT
     Dosage: UNK
     Route: 058

REACTIONS (6)
  - Wrong technique in device usage process [Unknown]
  - Injury associated with device [Unknown]
  - Traumatic haemorrhage [Recovered/Resolved]
  - Skin swelling [Unknown]
  - Contusion [Unknown]
  - Skin induration [Unknown]
